FAERS Safety Report 9099986 (Version 3)
Quarter: 2013Q2

REPORT INFORMATION
  Report Type: Spontaneous
  Country: US (occurrence: US)
  Receive Date: 20130215
  Receipt Date: 20130618
  Transmission Date: 20140414
  Serious: Yes (Other)
  Sender: FDA-Public Use
  Company Number: US-ELI_LILLY_AND_COMPANY-US201302002235

PATIENT
  Sex: Female

DRUGS (4)
  1. FORTEO [Suspect]
     Indication: OSTEOPOROSIS
     Dosage: 20 UG, QD
     Dates: start: 201204
  2. ONDANSETRON [Concomitant]
     Indication: NAUSEA
     Dosage: 8 MG, PRN
  3. PROCHLORPERAZINE [Concomitant]
     Indication: NAUSEA
     Dosage: 10 UG, PRN
  4. CLARITIN [Concomitant]
     Dosage: UNK, PRN

REACTIONS (1)
  - Invasive ductal breast carcinoma [Not Recovered/Not Resolved]
